FAERS Safety Report 20618068 (Version 1)
Quarter: 2022Q1

REPORT INFORMATION
  Report Type: Report from Study
  Country: US (occurrence: US)
  Receive Date: 20220321
  Receipt Date: 20220321
  Transmission Date: 20220424
  Serious: Yes (Other)
  Sender: FDA-Public Use
  Company Number: US-TAKEDA-2022TUS018129

PATIENT
  Sex: Male

DRUGS (1)
  1. ALOGLIPTIN BENZOATE\PIOGLITAZONE HYDROCHLORIDE [Suspect]
     Active Substance: ALOGLIPTIN BENZOATE\PIOGLITAZONE HYDROCHLORIDE
     Indication: Product used for unknown indication
     Dosage: UNK UNK, QD
     Route: 048

REACTIONS (5)
  - Neoplasm malignant [Unknown]
  - Diabetes mellitus [Unknown]
  - Therapy interrupted [Unknown]
  - Sleep apnoea syndrome [Unknown]
  - Blood pressure increased [Unknown]
